FAERS Safety Report 4382710-8 (Version None)
Quarter: 2004Q2

REPORT INFORMATION
  Report Type: 
  Country: None (occurrence: None)
  Receive Date: 20040616
  Receipt Date: 20040427
  Transmission Date: 20050107
  Serious: Yes (Death)
  Sender: FDA-Public Use
  Company Number: M-04-126

PATIENT
  Age: 47 Year
  Sex: Male
  Weight: 90.7194 kg

DRUGS (7)
  1. PACERONE [Suspect]
     Indication: ATRIAL FIBRILLATION
     Dosage: 200 MG BID PO
     Route: 048
     Dates: start: 20020313, end: 20020313
  2. PACERONE [Suspect]
     Indication: ATRIAL FIBRILLATION
     Dosage: 200 MG TID PO
     Route: 048
     Dates: start: 20020312, end: 20020312
  3. COUMADIN [Concomitant]
  4. DIGOXIN [Concomitant]
  5. TAMBOCOR [Concomitant]
  6. CARDURA [Concomitant]
  7. NORVASC [Concomitant]

REACTIONS (8)
  - ATRIAL FIBRILLATION [None]
  - CARDIOMEGALY [None]
  - DRUG INTERACTION [None]
  - HEADACHE [None]
  - HEART RATE DECREASED [None]
  - SYNCOPE [None]
  - VENTRICULAR EXTRASYSTOLES [None]
  - VENTRICULAR TACHYCARDIA [None]
